FAERS Safety Report 20532648 (Version 1)
Quarter: 2022Q1

REPORT INFORMATION
  Report Type: Spontaneous
  Country: US (occurrence: US)
  Receive Date: 20220301
  Receipt Date: 20220301
  Transmission Date: 20220423
  Serious: No
  Sender: FDA-Public Use
  Company Number: US-MYLANLABS-2022M1013474

PATIENT
  Age: 83 Year
  Sex: Female

DRUGS (1)
  1. LIDOCAINE PATCH [Suspect]
     Active Substance: LIDOCAINE
     Indication: Product used for unknown indication
     Dosage: 5 PERCENT
     Route: 003
     Dates: start: 20220215

REACTIONS (2)
  - Product adhesion issue [Unknown]
  - Pain [Unknown]

NARRATIVE: CASE EVENT DATE: 20220215
